FAERS Safety Report 4681702-9 (Version None)
Quarter: 2005Q2

REPORT INFORMATION
  Report Type: 
  Country: None (occurrence: None)
  Receive Date: 20050603
  Receipt Date: 20050131
  Transmission Date: 20051028
  Serious: Yes (Hospitalization)
  Sender: FDA-Public Use
  Company Number: US-MERCK-0502USA00074

PATIENT
  Age: 50 Year
  Sex: Female
  Weight: 86 kg

DRUGS (3)
  1. VIOXX [Suspect]
     Indication: BACK PAIN
     Route: 048
     Dates: start: 20011201, end: 20040101
  2. VIOXX [Suspect]
     Indication: OSTEOARTHRITIS
     Route: 048
     Dates: start: 20011201, end: 20040101
  3. ADVIL [Concomitant]
     Indication: BACK PAIN
     Route: 065
     Dates: start: 19930101, end: 20020101

REACTIONS (8)
  - ANGINA PECTORIS [None]
  - ATHEROSCLEROSIS [None]
  - CARDIAC VALVE DISEASE [None]
  - CORONARY ARTERY DISEASE [None]
  - EMOTIONAL DISTRESS [None]
  - HEART RATE IRREGULAR [None]
  - MYOCARDIAL INFARCTION [None]
  - OEDEMA PERIPHERAL [None]
